FAERS Safety Report 23049897 (Version 1)
Quarter: 2023Q4

REPORT INFORMATION
  Report Type: Spontaneous
  Country: FR (occurrence: FR)
  Receive Date: 20231010
  Receipt Date: 20231010
  Transmission Date: 20240110
  Serious: Yes (Other)
  Sender: FDA-Public Use
  Company Number: FR-002147023-NVSC2023FR216527

PATIENT
  Age: 78 Year
  Sex: Female

DRUGS (1)
  1. HYDROCHLOROTHIAZIDE\VALSARTAN [Suspect]
     Active Substance: HYDROCHLOROTHIAZIDE\VALSARTAN
     Indication: Hypertension
     Dosage: 160/25 MG, QD (IN THE MORNING, FROM SEVERAL YEARS AGO)
     Route: 065

REACTIONS (5)
  - Neuroendocrine carcinoma [Unknown]
  - Pulmonary mass [Unknown]
  - Visual impairment [Unknown]
  - Arthralgia [Unknown]
  - Dyspnoea [Unknown]
